FAERS Safety Report 8178652-2 (Version None)
Quarter: 2012Q1

REPORT INFORMATION
  Report Type: 
  Country: None (occurrence: None)
  Receive Date: 20120301
  Receipt Date: 20120221
  Transmission Date: 20120608
  Serious: Yes (Hospitalization)
  Sender: FDA-Public Use
  Company Number: FR-ASTRAZENECA-2012SE13094

PATIENT
  Age: 51 Year
  Sex: Male

DRUGS (14)
  1. MEPRONIZINE [Concomitant]
  2. PANTOPRAZOLE SODIUM [Concomitant]
  3. VALIUM [Concomitant]
     Route: 048
  4. AOTAL [Concomitant]
  5. ESCITALOPRAM OXALATE [Concomitant]
     Route: 048
  6. LOPERAMIDE HCL [Concomitant]
  7. ACETAMINOPHEN [Concomitant]
  8. ZESTRIL [Suspect]
     Route: 048
     Dates: start: 20110624
  9. BISOPROLOL FUMARATE [Suspect]
     Route: 048
     Dates: start: 20110624
  10. ASPIRIN [Suspect]
     Route: 048
     Dates: start: 20110624
  11. CRESTOR [Suspect]
     Route: 048
     Dates: start: 20110624
  12. NICOTINE [Suspect]
     Route: 062
     Dates: start: 20110701, end: 20110701
  13. MOTILIUM [Concomitant]
  14. DEPAKOTE [Concomitant]

REACTIONS (1)
  - VASCULITIS NECROTISING [None]
